FAERS Safety Report 13784162 (Version 1)
Quarter: 2017Q3

REPORT INFORMATION
  Report Type: Spontaneous
  Country: US (occurrence: US)
  Receive Date: 20170724
  Receipt Date: 20170724
  Transmission Date: 20171127
  Serious: No
  Sender: FDA-Public Use
  Company Number: US-PFIZER INC-2017316429

PATIENT
  Sex: Female

DRUGS (2)
  1. ALPRAZOLAM. [Suspect]
     Active Substance: ALPRAZOLAM
     Dosage: 1 MG (HALF OF 2 MG TABLET), EVERY 7 TO 8 HOURS
  2. ALPRAZOLAM. [Suspect]
     Active Substance: ALPRAZOLAM
     Dosage: 1 MG (HALF OF 2 MG TABLET), UNK

REACTIONS (8)
  - Feeling abnormal [Unknown]
  - Contusion [Unknown]
  - Suspected product tampering [Unknown]
  - Product taste abnormal [Unknown]
  - Product solubility abnormal [Unknown]
  - Intentional product misuse [Unknown]
  - Tremor [Unknown]
  - Drug ineffective [Unknown]
